FAERS Safety Report 7816937-7 (Version None)
Quarter: 2011Q4

REPORT INFORMATION
  Report Type: 
  Country: None (occurrence: None)
  Receive Date: 20111017
  Receipt Date: 20111012
  Transmission Date: 20120403
  Serious: Yes (Other)
  Sender: FDA-Public Use
  Company Number: GB-PFIZER INC-2011244497

PATIENT
  Age: 56 Year
  Sex: Male
  Weight: 80 kg

DRUGS (5)
  1. SALBUTAMOL [Concomitant]
     Indication: ASTHMA
     Route: 055
  2. LANSOPRAZOLE [Concomitant]
     Route: 048
  3. LEVOFLOXACIN [Concomitant]
     Indication: LUNG ABSCESS
     Route: 048
  4. CLINDAMYCIN PHOSPHATE [Suspect]
     Indication: LUNG ABSCESS
     Dosage: 450 MG, 4X/DAY
     Route: 048
     Dates: start: 20110301, end: 20110401
  5. SYMBICORT [Concomitant]
     Indication: ASTHMA
     Route: 055

REACTIONS (1)
  - ARTHRALGIA [None]
